FAERS Safety Report 25342098 (Version 1)
Quarter: 2025Q2

REPORT INFORMATION
  Report Type: Spontaneous
  Country: US (occurrence: US)
  Receive Date: 20250521
  Receipt Date: 20250521
  Transmission Date: 20250716
  Serious: No
  Sender: ADMA BIOLOGICS
  Company Number: ADMA2400289

PATIENT
  Sex: Female

DRUGS (2)
  1. ASCENIV [Suspect]
     Active Substance: HUMAN IMMUNOGLOBULIN G
     Indication: Product used for unknown indication
     Route: 042
  2. ASCENIV [Suspect]
     Active Substance: HUMAN IMMUNOGLOBULIN G
     Route: 042

REACTIONS (7)
  - Condition aggravated [Recovered/Resolved]
  - Loss of personal independence in daily activities [Recovered/Resolved]
  - Pain [Recovered/Resolved]
  - Arthralgia [Recovered/Resolved]
  - Pain in extremity [Recovered/Resolved]
  - Muscle spasms [Recovered/Resolved]
  - Drug ineffective [Unknown]
